FAERS Safety Report 26101337 (Version 1)
Quarter: 2025Q4

REPORT INFORMATION
  Report Type: Spontaneous
  Country: EU (occurrence: EU)
  Receive Date: 20251128
  Receipt Date: 20251128
  Transmission Date: 20260117
  Serious: Yes (Other)
  Sender: SEPTODONT
  Company Number: None

PATIENT
  Weight: 78 kg

DRUGS (13)
  1. EPINEPHRINE BITARTRATE\LIDOCAINE HYDROCHLORIDE [Suspect]
     Active Substance: EPINEPHRINE BITARTRATE\LIDOCAINE HYDROCHLORIDE
     Dates: start: 20251118
  2. NEOMYCIN [Suspect]
     Active Substance: NEOMYCIN
     Dosage: ONE PACK FOR EACH NOSTRIL , REMOVED ONNCE NOTED RASH IN RECOVERY
     Dates: start: 20251118
  3. POLYMYXIN [Suspect]
     Active Substance: POLYMYXIN
     Dosage: 1 PACK FOR EACH NOSTRIL
     Dates: start: 20251118
  4. SUGAMMADEX [Suspect]
     Active Substance: SUGAMMADEX
     Dates: start: 20251118
  5. MIDAZOLAM [Suspect]
     Active Substance: MIDAZOLAM
     Indication: Anxiety
     Dates: start: 20251118
  6. REMIFENTANIL [Suspect]
     Active Substance: REMIFENTANIL
     Indication: General anaesthesia
     Dates: start: 20251118
  7. PROPOFOL [Suspect]
     Active Substance: PROPOFOL
     Indication: General anaesthesia
     Dates: start: 20251118
  8. OXYCODONE [Suspect]
     Active Substance: OXYCODONE
     Indication: General anaesthesia
     Dates: start: 20251118
  9. ACETAMINOPHEN [Suspect]
     Active Substance: ACETAMINOPHEN
     Dates: start: 20251118
  10. IBUPROFEN [Suspect]
     Active Substance: IBUPROFEN
     Dates: start: 20251118
  11. ONDANSETRON [Suspect]
     Active Substance: ONDANSETRON
     Dates: start: 20251118
  12. DEXAMETHASONE [Suspect]
     Active Substance: DEXAMETHASONE
     Dosage: ONE PACK FOR EACH NOSTRIL ,REMOVED ONNCE NOTED RASH IN RECOVERY
     Dates: start: 20251118
  13. ROCURONIUM [Suspect]
     Active Substance: ROCURONIUM BROMIDE

REACTIONS (4)
  - Drug interaction [Unknown]
  - Rash pruritic [Recovering/Resolving]
  - Pallor [Unknown]
  - Product use in unapproved indication [Unknown]

NARRATIVE: CASE EVENT DATE: 20251118
